FAERS Safety Report 9557083 (Version 1)
Quarter: 2013Q3

REPORT INFORMATION
  Report Type: Spontaneous
  Country: US (occurrence: None)
  Receive Date: 20130815
  Receipt Date: 20130815
  Transmission Date: 20140515
  Serious: Yes (Hospitalization, Other)
  Sender: FDA-Public Use
  Company Number: ADR-2012-02086

PATIENT
  Age: 22 Year
  Sex: Male

DRUGS (1)
  1. BACLOFEN [Suspect]
     Dosage: 224.0 MCG/ DAY

REACTIONS (3)
  - Pruritus [None]
  - Muscle spasticity [None]
  - Underdose [None]
